FAERS Safety Report 5357862-3 (Version None)
Quarter: 2007Q2

REPORT INFORMATION
  Report Type: 
  Country: None (occurrence: None)
  Receive Date: 20070614
  Receipt Date: 20070611
  Transmission Date: 20071010
  Serious: Yes (Hospitalization)
  Sender: FDA-Public Use
  Company Number: FR-MERCK-0706FRA00033

PATIENT
  Age: 56 Year
  Sex: Male

DRUGS (2)
  1. INVANZ [Suspect]
     Indication: PROSTATITIS
     Route: 042
     Dates: start: 20070104, end: 20070216
  2. HYDROCHLOROTHIAZIDE AND VALSARTAN [Concomitant]
     Indication: HYPERTENSION
     Route: 048
     Dates: start: 20070104

REACTIONS (1)
  - AGRANULOCYTOSIS [None]
